FAERS Safety Report 7772190-4 (Version None)
Quarter: 2011Q3

REPORT INFORMATION
  Report Type: 
  Country: None (occurrence: None)
  Receive Date: 20110922
  Receipt Date: 20110119
  Transmission Date: 20111222
  Serious: No
  Sender: FDA-Public Use
  Company Number: US-ASTRAZENECA-2011SE03251

PATIENT
  Age: 29 Year
  Sex: Male

DRUGS (2)
  1. CELEXA [Concomitant]
  2. SEROQUEL [Suspect]
     Indication: BIPOLAR DISORDER
     Route: 048
     Dates: start: 20101201, end: 20110101

REACTIONS (2)
  - RESTLESS LEGS SYNDROME [None]
  - INCORRECT DOSE ADMINISTERED [None]
